FAERS Safety Report 6635636-0 (Version None)
Quarter: 2010Q1

REPORT INFORMATION
  Report Type: 
  Country: None (occurrence: None)
  Receive Date: 20100315
  Receipt Date: 20100308
  Transmission Date: 20100710
  Serious: Yes (Death, Life-Threatening)
  Sender: FDA-Public Use
  Company Number: RO-ROCHE-686412

PATIENT
  Sex: Female
  Weight: 60 kg

DRUGS (4)
  1. PEGASYS [Suspect]
     Route: 058
     Dates: start: 20090729, end: 20100209
  2. COPEGUS [Suspect]
     Route: 048
     Dates: start: 20090729, end: 20100209
  3. NEORECORMON [Suspect]
     Dosage: DOSE: 40000 UI, FREQUENCY: UNIQUE DOSE
     Route: 058
     Dates: start: 20100211, end: 20100211
  4. SILIMARIN [Concomitant]
     Route: 048

REACTIONS (3)
  - CEREBROVASCULAR ACCIDENT [None]
  - HAEMORRHAGE [None]
  - THROMBOCYTOPENIA [None]
